FAERS Safety Report 8507060-7 (Version None)
Quarter: 2012Q2

REPORT INFORMATION
  Report Type: 
  Country: None (occurrence: None)
  Receive Date: 20120628
  Receipt Date: 20120620
  Transmission Date: 20120825
  Serious: Yes (Hospitalization, Other)
  Sender: FDA-Public Use
  Company Number: WAES 1008USA00507

PATIENT
  Age: 4 Year
  Sex: Female

DRUGS (11)
  1. VITAMINS (UNSPECIFIED) [Concomitant]
  2. EFAVIRENZ [Suspect]
     Indication: PRODUCT USED FOR UNKNOWN INDICATION
     Dosage: 250 MG/HS 200 MG/DAILY
     Route: 048
     Dates: start: 20100714
  3. EFAVIRENZ [Suspect]
     Indication: PRODUCT USED FOR UNKNOWN INDICATION
     Dosage: 250 MG/HS 200 MG/DAILY
     Route: 048
     Dates: start: 20101124
  4. ACETAMINOPHEN [Concomitant]
  5. DIDANOSINE [Suspect]
     Indication: PRODUCT USED FOR UNKNOWN INDICATION
     Dosage: 175 MG/AM 117 MG/AM
     Route: 048
     Dates: start: 20101124
  6. DIDANOSINE [Suspect]
     Indication: PRODUCT USED FOR UNKNOWN INDICATION
     Dosage: 175 MG/AM 117 MG/AM
     Route: 048
     Dates: start: 20080416, end: 20101201
  7. BACTRIM [Concomitant]
  8. ISENTRESS [Suspect]
     Indication: HIV INFECTION
     Dosage: 100 MG/BID
     Route: 048
     Dates: start: 20100714
  9. ABACAVIR SULFATE [Suspect]
     Indication: PRODUCT USED FOR UNKNOWN INDICATION
     Dosage: 140 MG/BID
     Route: 048
     Dates: start: 20100714
  10. LAMIVUDINE [Suspect]
     Indication: PRODUCT USED FOR UNKNOWN INDICATION
     Dosage: 75 MG/BID
     Route: 048
     Dates: start: 20100714, end: 20101124
  11. FOLIC ACID [Concomitant]

REACTIONS (11)
  - RASH ERYTHEMATOUS [None]
  - HEPATOMEGALY [None]
  - LACTIC ACIDOSIS [None]
  - RASH MACULO-PAPULAR [None]
  - PRURITUS [None]
  - LOBAR PNEUMONIA [None]
  - ALANINE AMINOTRANSFERASE INCREASED [None]
  - GAMMA-GLUTAMYLTRANSFERASE INCREASED [None]
  - ASPARTATE AMINOTRANSFERASE INCREASED [None]
  - LYMPHADENOPATHY [None]
  - DRUG-INDUCED LIVER INJURY [None]
